FAERS Safety Report 13331514 (Version 1)
Quarter: 2017Q1

REPORT INFORMATION
  Report Type: Spontaneous
  Country: US (occurrence: US)
  Receive Date: 20170313
  Receipt Date: 20170313
  Transmission Date: 20170428
  Serious: No
  Sender: FDA-Public Use
  Company Number: US-BAYER-2017-047694

PATIENT
  Age: 82 Year

DRUGS (2)
  1. CLARITIN [Suspect]
     Active Substance: LORATADINE
  2. TYLENOL WITH CODEINE [Concomitant]
     Active Substance: ACETAMINOPHEN\CODEINE PHOSPHATE

REACTIONS (8)
  - Sneezing [Unknown]
  - Oropharyngeal pain [Unknown]
  - Peripheral swelling [Unknown]
  - Cough [Unknown]
  - Rhinorrhoea [Unknown]
  - Headache [None]
  - Lower urinary tract symptoms [Unknown]
  - Joint swelling [Unknown]
